FAERS Safety Report 4322157-3 (Version None)
Quarter: 2004Q1

REPORT INFORMATION
  Report Type: 
  Country: None (occurrence: None)
  Receive Date: 20040319
  Receipt Date: 20040311
  Transmission Date: 20041129
  Serious: No
  Sender: FDA-Public Use
  Company Number: A044-002-004899

PATIENT
  Age: 70 Year
  Sex: Female

DRUGS (1)
  1. ARICEPT [Suspect]
     Dosage: 5 MG, 1 IN 1 D, ORAL
     Route: 048

REACTIONS (1)
  - PSYCHOTIC DISORDER [None]
